FAERS Safety Report 6641724-5 (Version None)
Quarter: 2010Q1

REPORT INFORMATION
  Report Type: 
  Country: None (occurrence: None)
  Receive Date: 20100319
  Receipt Date: 20100309
  Transmission Date: 20100710
  Serious: Yes (Other)
  Sender: FDA-Public Use
  Company Number: US-BIOGENIDEC-2010BI008272

PATIENT
  Sex: Female

DRUGS (1)
  1. TYSABRI [Suspect]
     Indication: MULTIPLE SCLEROSIS
     Route: 042
     Dates: start: 20070629, end: 20080930

REACTIONS (4)
  - BRONCHITIS [None]
  - CARDIAC FAILURE CONGESTIVE [None]
  - HEPATITIS [None]
  - OESOPHAGEAL DILATION PROCEDURE [None]
